FAERS Safety Report 4832674-5 (Version None)
Quarter: 2005Q4

REPORT INFORMATION
  Report Type: 
  Country: None (occurrence: None)
  Receive Date: 20051121
  Receipt Date: 20051109
  Transmission Date: 20060501
  Serious: Yes (Other)
  Sender: FDA-Public Use
  Company Number: PHBS2005US16786

PATIENT
  Age: 57 Year
  Sex: Male

DRUGS (1)
  1. LAMISIL [Suspect]
     Route: 065

REACTIONS (5)
  - DERMATOMYOSITIS [None]
  - MUSCULAR WEAKNESS [None]
  - PHOTOSENSITIVITY REACTION [None]
  - SKIN DYSTROPHY [None]
  - SKIN NECROSIS [None]
